FAERS Safety Report 21879070 (Version 3)
Quarter: 2023Q1

REPORT INFORMATION
  Report Type: Spontaneous
  Country: US (occurrence: US)
  Receive Date: 20230118
  Receipt Date: 20230322
  Transmission Date: 20230418
  Serious: No
  Sender: FDA-Public Use
  Company Number: US-PFIZER INC-202300016672

PATIENT
  Age: 58 Year
  Sex: Female
  Weight: 47.619 kg

DRUGS (1)
  1. PAXLOVID [Suspect]
     Active Substance: NIRMATRELVIR\RITONAVIR
     Indication: COVID-19
     Dosage: [PF-07321332 300MG]/[RITONAVIR 100MG]; 2X/DAY
     Dates: start: 20230102, end: 20230106

REACTIONS (8)
  - COVID-19 [Recovered/Resolved]
  - Disease recurrence [Recovered/Resolved]
  - Hypertension [Unknown]
  - Dysgeusia [Unknown]
  - COVID-19 [Recovered/Resolved]
  - Supraventricular tachycardia [Recovered/Resolved]
  - Limb injury [Unknown]
  - Pain in extremity [Unknown]

NARRATIVE: CASE EVENT DATE: 20230101
